FAERS Safety Report 5094301-4 (Version None)
Quarter: 2006Q3

REPORT INFORMATION
  Report Type: 
  Country: None (occurrence: None)
  Receive Date: 20060731
  Receipt Date: 20060428
  Transmission Date: 20061208
  Serious: No
  Sender: FDA-Public Use
  Company Number: 2006PV012992

PATIENT
  Age: 55 Year
  Sex: Female
  Weight: 123.832 kg

DRUGS (5)
  1. BYETTA [Suspect]
     Indication: DIABETES MELLITUS NON-INSULIN-DEPENDENT
     Dosage: 10 MCG; QAM; SC; SEE IMAGE
     Route: 058
     Dates: start: 20060406, end: 20060420
  2. BYETTA [Suspect]
     Indication: DIABETES MELLITUS NON-INSULIN-DEPENDENT
     Dosage: 10 MCG; QAM; SC; SEE IMAGE
     Route: 058
     Dates: start: 20060421
  3. BYETTA [Suspect]
     Indication: DIABETES MELLITUS NON-INSULIN-DEPENDENT
     Dosage: 10 MCG; QAM; SC; SEE IMAGE
     Route: 058
     Dates: start: 20060421
  4. HUMALOG [Concomitant]
  5. LANTUS [Concomitant]

REACTIONS (4)
  - ENERGY INCREASED [None]
  - NAUSEA [None]
  - THERAPEUTIC RESPONSE UNEXPECTED [None]
  - WEIGHT DECREASED [None]
